FAERS Safety Report 9148705 (Version 2)
Quarter: 2013Q2

REPORT INFORMATION
  Report Type: Spontaneous
  Country: LB (occurrence: LB)
  Receive Date: 20130308
  Receipt Date: 20130415
  Transmission Date: 20140414
  Serious: Yes (Other)
  Sender: FDA-Public Use
  Company Number: LB-NOVOPROD-372408

PATIENT
  Age: 54 Year
  Sex: Female
  Weight: 85 kg

DRUGS (9)
  1. VICTOZA [Suspect]
     Indication: TYPE 2 DIABETES MELLITUS
     Dosage: 1.2 MG, QD
     Route: 058
     Dates: start: 201109, end: 201209
  2. LANTUS [Concomitant]
     Indication: TYPE 2 DIABETES MELLITUS
     Dosage: 20 U, QD
     Route: 058
  3. GLUCOPHAGE [Concomitant]
     Dosage: 850 TID
     Route: 048
  4. DIAMICRON [Concomitant]
     Dosage: 60, QD
     Route: 048
  5. ATORVASTATIN [Concomitant]
     Dosage: UNKNOWN
     Route: 065
  6. LIPANTHYL [Concomitant]
     Dosage: 160 QD
     Route: 048
  7. ELTROXIN [Concomitant]
     Dosage: 100,QD
     Route: 048
  8. CO-DIOVAN [Concomitant]
     Dosage: 160/12.5 QD
     Route: 048
  9. CONCOR [Concomitant]
     Dosage: 5, QD
     Route: 048

REACTIONS (1)
  - Pancreatic carcinoma [Unknown]
